FAERS Safety Report 4514168-X (Version None)
Quarter: 2004Q4

REPORT INFORMATION
  Report Type: 
  Country: None (occurrence: None)
  Receive Date: 20041129
  Receipt Date: 20041117
  Transmission Date: 20050328
  Serious: Yes (Other)
  Sender: FDA-Public Use
  Company Number: 2004094716

PATIENT
  Age: 25 Year
  Sex: Female
  Weight: 99.7913 kg

DRUGS (2)
  1. KAOPECTATE (BISMUTH SUBASALICYLATE) [Suspect]
     Dosage: 2 CAPLETS PRN, ORAL
     Route: 048
  2. DRUG UNSPECIFIED [Concomitant]

REACTIONS (2)
  - EPILEPSY [None]
  - ULCER [None]
